FAERS Safety Report 9665699 (Version 2)
Quarter: 2014Q3

REPORT INFORMATION
  Report Type: Spontaneous
  Country: JP (occurrence: JP)
  Receive Date: 20131104
  Receipt Date: 20140911
  Transmission Date: 20150326
  Serious: Yes (Hospitalization, Other)
  Sender: FDA-Public Use
  Company Number: PHHY2013JP122973

PATIENT
  Age: 63 Year
  Sex: Male
  Weight: 48 kg

DRUGS (8)
  1. EVEROLIMUS [Suspect]
     Active Substance: EVEROLIMUS
     Indication: RENAL CELL CARCINOMA
     Dosage: 10 MG, QD
     Route: 048
     Dates: start: 20120725, end: 20120803
  2. OXYCODONE [Concomitant]
     Active Substance: OXYCODONE
  3. EVEROLIMUS [Suspect]
     Active Substance: EVEROLIMUS
     Dosage: 10 MG, QD
     Route: 048
     Dates: start: 20120829, end: 20120903
  4. RADIATION THERAPY [Concomitant]
     Active Substance: RADIATION THERAPY
     Indication: BACK PAIN
     Dates: start: 20120803, end: 20120827
  5. EVEROLIMUS [Suspect]
     Active Substance: EVEROLIMUS
     Dosage: 5 MG, QD
     Route: 048
     Dates: start: 20120904, end: 20120910
  6. NSAID^S [Concomitant]
     Active Substance: UNSPECIFIED INGREDIENT
  7. EVEROLIMUS [Suspect]
     Active Substance: EVEROLIMUS
     Dosage: 5 MG, QD
     Route: 048
     Dates: start: 20121012, end: 20121206
  8. RADIATION THERAPY [Concomitant]
     Active Substance: RADIATION THERAPY
     Indication: METASTASES TO BONE

REACTIONS (5)
  - Radiation oesophagitis [Recovered/Resolved]
  - Vomiting [Recovering/Resolving]
  - Dysphagia [Recovering/Resolving]
  - Nausea [Recovering/Resolving]
  - Odynophagia [Unknown]

NARRATIVE: CASE EVENT DATE: 20120817
